FAERS Safety Report 17237212 (Version 2)
Quarter: 2020Q1

REPORT INFORMATION
  Report Type: Spontaneous
  Country: SE (occurrence: SE)
  Receive Date: 20200106
  Receipt Date: 20200213
  Transmission Date: 20200409
  Serious: Yes (Disabling)
  Sender: FDA-Public Use
  Company Number: SE-ROCHE-2508237

PATIENT
  Age: 73 Year
  Sex: Female

DRUGS (1)
  1. AVASTIN [Suspect]
     Active Substance: BEVACIZUMAB
     Indication: OVARIAN CANCER
     Dosage: MOST RECENT DOSE ON 29/NOV/2019.
     Route: 065
     Dates: start: 201810

REACTIONS (2)
  - Muscle spasms [Recovered/Resolved with Sequelae]
  - Neck pain [Recovered/Resolved with Sequelae]

NARRATIVE: CASE EVENT DATE: 2019
